FAERS Safety Report 8048569-2 (Version None)
Quarter: 2012Q1

REPORT INFORMATION
  Report Type: 
  Country: None (occurrence: None)
  Receive Date: 20120117
  Receipt Date: 20120113
  Transmission Date: 20120608
  Serious: Yes (Hospitalization)
  Sender: FDA-Public Use
  Company Number: IT-BRISTOL-MYERS SQUIBB COMPANY-16323339

PATIENT
  Age: 65 Year
  Sex: Male
  Weight: 86 kg

DRUGS (6)
  1. PEMETREXED DISODIUM [Suspect]
     Indication: NON-SMALL CELL LUNG CANCER
     Route: 042
     Dates: start: 20111220
  2. DEXAMETHASONE [Concomitant]
     Dates: start: 20111219, end: 20111221
  3. CISPLATIN [Suspect]
     Indication: NON-SMALL CELL LUNG CANCER
     Route: 042
     Dates: start: 20111220
  4. FOLIC ACID [Concomitant]
     Dates: start: 20111213
  5. VITAMIN B-12 [Concomitant]
     Dates: start: 20111213
  6. ACETAMINOPHEN [Concomitant]
     Dates: start: 20111214

REACTIONS (6)
  - ANAEMIA [None]
  - PNEUMONIA [None]
  - MUCOSAL INFLAMMATION [None]
  - ASTHENIA [None]
  - NEUTROPENIA [None]
  - THROMBOCYTOPENIA [None]
